FAERS Safety Report 23034031 (Version 2)
Quarter: 2023Q4

REPORT INFORMATION
  Report Type: Spontaneous
  Country: US (occurrence: US)
  Receive Date: 20231005
  Receipt Date: 20231010
  Transmission Date: 20240110
  Serious: Yes (Other)
  Sender: FDA-Public Use
  Company Number: US-BAXTER-2023BAX032437

PATIENT
  Age: 62 Year
  Sex: Male

DRUGS (6)
  1. VANCOMYCIN [Suspect]
     Active Substance: VANCOMYCIN
     Indication: Osteomyelitis
     Dosage: 6 WEEKS OF INPATIENT (IV)
     Route: 042
  2. VANCOMYCIN [Suspect]
     Active Substance: VANCOMYCIN
     Indication: Evidence based treatment
     Dosage: FOR 3 WEEKS 1500 MG TWICE DAILY
     Route: 042
  3. PALIPERIDONE [Concomitant]
     Active Substance: PALIPERIDONE
     Dosage: INITIATION SERIES 6 WEEKS PRIOR (INJECTIONS)
     Route: 030
  4. PALIPERIDONE [Concomitant]
     Active Substance: PALIPERIDONE
     Dosage: RE-INITIATION INJECTION (MAINTENANCE DOSES)
     Route: 030
  5. CEFTRIAXONE [Concomitant]
     Active Substance: CEFTRIAXONE\CEFTRIAXONE SODIUM
     Indication: Osteomyelitis
     Dosage: 6 WEEKS OF INPATIENT (IV)
     Route: 042
  6. CEFTRIAXONE [Concomitant]
     Active Substance: CEFTRIAXONE\CEFTRIAXONE SODIUM
     Indication: Evidence based treatment
     Dosage: FOR 6 WEEKS 2 G DAILY
     Route: 042

REACTIONS (2)
  - Leukopenia [Unknown]
  - Neutropenia [Recovered/Resolved]
